FAERS Safety Report 16235768 (Version 3)
Quarter: 2021Q4

REPORT INFORMATION
  Report Type: Report from Study
  Country: GR (occurrence: GR)
  Receive Date: 20190424
  Receipt Date: 20211115
  Transmission Date: 20220304
  Serious: Yes (Death, Other)
  Sender: FDA-Public Use
  Company Number: GR-BOEHRINGERINGELHEIM-2019-BI-018971

PATIENT
  Age: 80 Year
  Sex: Male
  Weight: 81 kg

DRUGS (3)
  1. OFEV [Suspect]
     Active Substance: NINTEDANIB
     Indication: Idiopathic pulmonary fibrosis
     Route: 065
     Dates: start: 20170707
  2. VALDOXAN [Concomitant]
     Active Substance: AGOMELATINE
     Indication: Depression
     Dosage: 25MGX1
     Route: 065
     Dates: start: 20180202
  3. IVABRADINE [Concomitant]
     Active Substance: IVABRADINE
     Indication: Arrhythmia
     Dosage: 5MGX1
     Route: 065
     Dates: start: 20180202

REACTIONS (1)
  - Idiopathic pulmonary fibrosis [Fatal]
